FAERS Safety Report 5375028-8 (Version None)
Quarter: 2007Q2

REPORT INFORMATION
  Report Type: 
  Country: None (occurrence: None)
  Receive Date: 20070629
  Receipt Date: 20070620
  Transmission Date: 20071010
  Serious: Yes (Other)
  Sender: FDA-Public Use
  Company Number: FR-SANOFI-SYNTHELABO-A02200701490

PATIENT
  Sex: Male
  Weight: 77 kg

DRUGS (8)
  1. ELOXATIN [Suspect]
     Indication: RECTAL CANCER RECURRENT
     Route: 042
     Dates: start: 20070604, end: 20070604
  2. PRAVASTATIN [Concomitant]
     Indication: DRUG USE FOR UNKNOWN INDICATION
     Route: 048
  3. VASTAREL [Concomitant]
     Indication: ISCHAEMIA
     Dosage: UNK
     Route: 048
  4. SOPROL [Concomitant]
     Indication: HYPERTENSION
     Route: 048
  5. GLUCOPHAGE [Concomitant]
     Indication: DIABETES MELLITUS
     Route: 048
  6. ASASANTINE [Concomitant]
     Indication: PLATELET AGGREGATION INHIBITION
     Route: 048
  7. FOZITEC [Suspect]
     Indication: HYPERTENSION
     Route: 048
  8. PRIMPERAN INJ [Concomitant]
     Indication: VOMITING
     Route: 042
     Dates: start: 20070604, end: 20070604

REACTIONS (5)
  - DRUG HYPERSENSITIVITY [None]
  - DYSPNOEA [None]
  - LARYNGEAL OEDEMA [None]
  - RALES [None]
  - TONGUE OEDEMA [None]
